FAERS Safety Report 9093963 (Version 1)
Quarter: 2013Q1

REPORT INFORMATION
  Report Type: Spontaneous
  Country: US (occurrence: None)
  Receive Date: 20130122
  Receipt Date: 20130122
  Transmission Date: 20140127
  Serious: Yes (Death)
  Sender: FDA-Public Use
  Company Number: 2013POI077000003

PATIENT
  Age: 64 Year
  Sex: Female

DRUGS (21)
  1. ZIPSOR [Suspect]
     Route: 048
  2. DESIPRAMINE [Suspect]
     Route: 048
  3. DILTIAZEM [Suspect]
     Route: 048
  4. VENLAFAXINE [Suspect]
     Route: 048
  5. LAMOTRIGINE [Suspect]
  6. HYDROCHLOROTHIAZIDE [Suspect]
  7. ARMODAFINIL [Suspect]
  8. POTASSIUM CHLORIDE [Suspect]
  9. TRIFLUOPERAZINE [Suspect]
     Route: 048
  10. ESCITALOPRAM [Suspect]
     Route: 048
  11. THYROID [Suspect]
     Route: 048
  12. PANTOPRAZOLE [Suspect]
     Route: 048
  13. LANSOPRAZOLE [Suspect]
     Route: 048
  14. ROVUSTATIN [Suspect]
     Route: 048
  15. NAPROXEN [Suspect]
  16. NITROFURANTOIN [Suspect]
     Route: 048
  17. ACETAMINOPHEN\HYDROCODONE [Suspect]
     Route: 048
  18. ACETAMINOPHEN/PROPOXYPHENE [Suspect]
     Route: 048
  19. SOLIFENACIN [Suspect]
     Route: 048
  20. CIPROFLOXACIN [Suspect]
  21. PROGESTIN [Suspect]
     Route: 048

REACTIONS (1)
  - Completed suicide [None]
